FAERS Safety Report 5898951-4 (Version None)
Quarter: 2008Q3

REPORT INFORMATION
  Report Type: 
  Country: None (occurrence: None)
  Receive Date: 20080925
  Receipt Date: 20080918
  Transmission Date: 20090109
  Serious: Yes (Other)
  Sender: FDA-Public Use
  Company Number: DE-PFIZER INC-2008073536

PATIENT
  Sex: Female

DRUGS (6)
  1. NORVASC [Suspect]
     Indication: HYPERTENSION
     Route: 048
     Dates: start: 20040729, end: 20040801
  2. CAPTOHEXAL [Concomitant]
     Route: 048
  3. BISOPROLOL FUMARATE [Concomitant]
     Route: 048
  4. GYNOKADIN TABLET [Concomitant]
  5. GESTAKADIN [Concomitant]
     Route: 048
  6. ACETYLSALICYLIC ACID SRT [Concomitant]
     Route: 048

REACTIONS (1)
  - TREMOR [None]
